FAERS Safety Report 15928862 (Version 1)
Quarter: 2019Q1

REPORT INFORMATION
  Report Type: Spontaneous
  Country: US (occurrence: US)
  Receive Date: 20190206
  Receipt Date: 20190206
  Transmission Date: 20190417
  Serious: No
  Sender: FDA-Public Use
  Company Number: PHEH2019US005096

PATIENT
  Sex: Female

DRUGS (2)
  1. LENVIMA [Suspect]
     Active Substance: LENVATINIB
     Indication: RENAL CANCER
     Dosage: 10 MG, QD
     Route: 048
  2. AFINITOR [Suspect]
     Active Substance: EVEROLIMUS
     Indication: RENAL CANCER
     Dosage: UNK UNK, QD
     Route: 048
     Dates: end: 201812

REACTIONS (6)
  - Pyrexia [Unknown]
  - Urinary tract infection [Unknown]
  - Renal function test abnormal [Unknown]
  - Musculoskeletal chest pain [Unknown]
  - Blood pressure increased [Unknown]
  - Abdominal pain [Unknown]
